FAERS Safety Report 19399850 (Version 1)
Quarter: 2021Q2

REPORT INFORMATION
  Report Type: Spontaneous
  Country: AT (occurrence: AT)
  Receive Date: 20210610
  Receipt Date: 20210610
  Transmission Date: 20210717
  Serious: Yes (Hospitalization, Other)
  Sender: FDA-Public Use
  Company Number: AT-TEVA-2021-AT-1920507

PATIENT
  Age: 16 Year
  Sex: Female

DRUGS (14)
  1. LAMOTRIGINE. [Suspect]
     Active Substance: LAMOTRIGINE
     Indication: MIGRAINE WITH AURA
     Route: 065
     Dates: start: 201608
  2. FLUNARIZINE [Suspect]
     Active Substance: FLUNARIZINE
     Indication: MIGRAINE WITH AURA
     Dosage: 10 MILLIGRAM DAILY;
     Route: 065
     Dates: start: 201708
  3. LAMOTRIGINE. [Suspect]
     Active Substance: LAMOTRIGINE
     Dosage: THE DOSE OF LAMOTRIGINE WAS SLOWLY INCREASED BY 25 MG EVERY 1?2 WEEKS UNTIL A DAILY DOSAGE OF 200...
     Route: 065
     Dates: start: 201703
  4. VALPROIC ACID. [Suspect]
     Active Substance: VALPROIC ACID
     Indication: MIGRAINE WITH AURA
     Dosage: 1000 MILLIGRAM DAILY;
     Route: 065
     Dates: start: 201706
  5. LEVETIRACETAM. [Suspect]
     Active Substance: LEVETIRACETAM
     Dosage: 2 GRAM DAILY; SLOWLY TITRATED UP TO 2 G/DAY WITHIN 6 WEEKS.
     Route: 065
  6. ZONISAMIDE. [Suspect]
     Active Substance: ZONISAMIDE
     Dosage: 350 MILLIGRAM DAILY;
     Route: 065
     Dates: start: 2018
  7. TOPIRAMATE. [Suspect]
     Active Substance: TOPIRAMATE
     Indication: MIGRAINE WITH AURA
     Dosage: 100 MILLIGRAM DAILY;
     Route: 065
     Dates: start: 2015
  8. METHYLPREDNISOLONE. [Suspect]
     Active Substance: METHYLPREDNISOLONE
     Indication: MIGRAINE WITH AURA
     Dosage: 80 MILLIGRAM DAILY;
     Route: 048
     Dates: start: 201702, end: 201703
  9. DRONABINOL. [Suspect]
     Active Substance: DRONABINOL
     Indication: MIGRAINE WITH AURA
     Dosage: 2.5 MILLIGRAM DAILY;
     Route: 065
     Dates: start: 201802
  10. ZONISAMIDE. [Suspect]
     Active Substance: ZONISAMIDE
     Indication: MIGRAINE WITH AURA
     Dosage: 50 MILLIGRAM DAILY; STARTED AN OFF?LABEL TREATMENT WITH ZONISAMIDE 50 MG/DAY IN MAY 2018, INCREASING
     Route: 065
     Dates: start: 201805
  11. PREGABALIN. [Suspect]
     Active Substance: PREGABALIN
     Indication: MIGRAINE WITH AURA
     Dosage: 50 MILLIGRAM DAILY; STARTED WITH 50 MG/DAY, DIVIDED INTO TWO SINGLE DOSES
     Route: 065
     Dates: start: 201705
  12. PREGABALIN. [Suspect]
     Active Substance: PREGABALIN
     Dosage: 250 MILLIGRAM DAILY; TITRATED UP TO A DAILY DOSE OF 250 MG
     Route: 065
  13. CORTISONE [Concomitant]
     Active Substance: CORTISONE
     Indication: STATUS MIGRAINOSUS
     Route: 042
     Dates: start: 201801
  14. LEVETIRACETAM. [Suspect]
     Active Substance: LEVETIRACETAM
     Indication: MIGRAINE WITH AURA
     Dosage: 500 MILLIGRAM DAILY;
     Route: 065
     Dates: start: 201711

REACTIONS (8)
  - Dyskinesia [Unknown]
  - Drug ineffective [Unknown]
  - Aphasia [Unknown]
  - Behaviour disorder [Unknown]
  - Disturbance in attention [Unknown]
  - Weight decreased [Unknown]
  - Off label use [Unknown]
  - Weight increased [Unknown]

NARRATIVE: CASE EVENT DATE: 2015
